FAERS Safety Report 8345914-5 (Version None)
Quarter: 2012Q2

REPORT INFORMATION
  Report Type: 
  Country: None (occurrence: None)
  Receive Date: 20120509
  Receipt Date: 20120504
  Transmission Date: 20120825
  Serious: No
  Sender: FDA-Public Use
  Company Number: US-BIOGENIDEC-2012BI015681

PATIENT
  Sex: Female

DRUGS (2)
  1. AVONEX [Suspect]
     Route: 030
     Dates: start: 20030101, end: 20120301
  2. AVONEX [Suspect]
     Indication: MULTIPLE SCLEROSIS
     Route: 030
     Dates: start: 20000901, end: 20030101

REACTIONS (6)
  - DEATH OF RELATIVE [None]
  - STRESS [None]
  - INJECTION SITE ERYTHEMA [None]
  - DEPRESSION [None]
  - INJECTION SITE HAEMATOMA [None]
  - ANXIETY [None]
